FAERS Safety Report 4982689-1 (Version None)
Quarter: 2006Q2

REPORT INFORMATION
  Report Type: 
  Country: None (occurrence: None)
  Receive Date: 20060425
  Receipt Date: 20050930
  Transmission Date: 20061013
  Serious: Yes (Disabling, Other)
  Sender: FDA-Public Use
  Company Number: US-MERCK-0510USA02006

PATIENT
  Age: 43 Year
  Sex: Male
  Weight: 62 kg

DRUGS (5)
  1. VIOXX [Suspect]
     Indication: BACK PAIN
     Route: 048
     Dates: start: 20010101, end: 20030818
  2. VIOXX [Suspect]
     Indication: ARTHRITIS
     Route: 048
     Dates: start: 20010101, end: 20030818
  3. MOTRIN [Concomitant]
     Route: 065
  4. TORADOL [Concomitant]
     Route: 065
  5. PEPCID [Concomitant]
     Route: 065

REACTIONS (20)
  - ADVERSE DRUG REACTION [None]
  - ANXIETY [None]
  - BLADDER SPASM [None]
  - BLOOD CHOLESTEROL INCREASED [None]
  - BLOOD TRIGLYCERIDES INCREASED [None]
  - CEREBROVASCULAR ACCIDENT [None]
  - HEPATIC FAILURE [None]
  - HYPERCHLORHYDRIA [None]
  - INFECTION [None]
  - INTERVERTEBRAL DISC PROTRUSION [None]
  - NAUSEA [None]
  - NEPHROLITHIASIS [None]
  - PAIN [None]
  - PANCREATITIS [None]
  - PANIC ATTACK [None]
  - PARALYSIS [None]
  - PELVIC FRACTURE [None]
  - PEPTIC ULCER [None]
  - STOMACH DISCOMFORT [None]
  - TRANSIENT ISCHAEMIC ATTACK [None]
